FAERS Safety Report 21338322 (Version 2)
Quarter: 2022Q3

REPORT INFORMATION
  Report Type: Spontaneous
  Country: ES (occurrence: ES)
  Receive Date: 20220915
  Receipt Date: 20220919
  Transmission Date: 20221026
  Serious: Yes (Life-Threatening, Hospitalization, Other)
  Sender: FDA-Public Use
  Company Number: ES-GLAXOSMITHKLINE-ES2022082778

PATIENT
  Age: 19 Year
  Sex: Female

DRUGS (7)
  1. LORAZEPAM [Suspect]
     Active Substance: LORAZEPAM
     Indication: Anxiety
     Dosage: 20 MG, SINGLE
     Route: 048
     Dates: start: 20220226, end: 20220226
  2. LORAZEPAM [Suspect]
     Active Substance: LORAZEPAM
     Dosage: 1 MG, AS NEEDED
     Route: 048
     Dates: start: 20220301, end: 20220301
  3. ACETAMINOPHEN [Suspect]
     Active Substance: ACETAMINOPHEN
     Dosage: 18 G, SINGLE
     Route: 048
     Dates: start: 20220226, end: 20220226
  4. RSV VACCINE [Concomitant]
     Dosage: DOSE 1, SINGLE
  5. PAROXETINE [Concomitant]
     Active Substance: PAROXETINE
     Indication: Anxiety
     Dosage: 10 MG, 1X/DAY
     Route: 048
     Dates: start: 20220217, end: 20220225
  6. PAROXETINE [Concomitant]
     Active Substance: PAROXETINE
     Dosage: 20 MG, 1D
     Route: 048
     Dates: start: 20220301, end: 202203
  7. ACETYLCYSTEINE [Concomitant]
     Active Substance: ACETYLCYSTEINE
     Indication: Toxicity to various agents
     Dosage: 5 G, SINGLE
     Route: 042
     Dates: start: 20220226, end: 20220226

REACTIONS (7)
  - Intentional overdose [Recovered/Resolved]
  - Suicide attempt [Recovered/Resolved]
  - Suicidal ideation [Unknown]
  - Insomnia [Unknown]
  - Flat affect [Unknown]
  - Nervousness [Unknown]
  - Fear [Unknown]

NARRATIVE: CASE EVENT DATE: 20220226
